FAERS Safety Report 23452397 (Version 1)
Quarter: 2024Q1

REPORT INFORMATION
  Report Type: Spontaneous
  Country: SY (occurrence: SY)
  Receive Date: 20240129
  Receipt Date: 20240129
  Transmission Date: 20240410
  Serious: Yes (Other)
  Sender: FDA-Public Use
  Company Number: SY-JNJFOC-20240151677

PATIENT
  Age: 10 Year
  Sex: Male
  Weight: 34 kg

DRUGS (4)
  1. STELARA [Suspect]
     Active Substance: USTEKINUMAB
     Indication: Product used for unknown indication
     Dosage: APPROXIMATELY 6MG/KG
     Route: 040
  2. STELARA [Suspect]
     Active Substance: USTEKINUMAB
     Dosage: WEEK 8
     Route: 058
  3. STELARA [Suspect]
     Active Substance: USTEKINUMAB
     Route: 058
  4. STELARA [Suspect]
     Active Substance: USTEKINUMAB
     Route: 058

REACTIONS (3)
  - Colitis ulcerative [Recovered/Resolved]
  - Disseminated tuberculosis [Unknown]
  - Weight increased [Unknown]
